FAERS Safety Report 24210271 (Version 3)
Quarter: 2024Q3

REPORT INFORMATION
  Report Type: Spontaneous
  Country: US (occurrence: US)
  Receive Date: 20240814
  Receipt Date: 20240913
  Transmission Date: 20241017
  Serious: No
  Sender: PFIZER
  Company Number: US-PFIZER INC-202400234074

PATIENT
  Age: 46 Year
  Sex: Female

DRUGS (1)
  1. XALKORI [Suspect]
     Active Substance: CRIZOTINIB
     Indication: Non-small cell lung cancer
     Dosage: UNK
     Dates: start: 201609

REACTIONS (3)
  - Nausea [Not Recovered/Not Resolved]
  - Fatigue [Unknown]
  - Blood creatine phosphokinase abnormal [Unknown]

NARRATIVE: CASE EVENT DATE: 20240103
